FAERS Safety Report 17671469 (Version 1)
Quarter: 2020Q2

REPORT INFORMATION
  Report Type: Spontaneous
  Country: US (occurrence: US)
  Receive Date: 20200415
  Receipt Date: 20200415
  Transmission Date: 20200713
  Serious: No
  Sender: FDA-Public Use
  Company Number: None

PATIENT
  Age: 63 Year
  Sex: Female
  Weight: 40.05 kg

DRUGS (1)
  1. FECAL TRANSPLANT STOOL SAMPLE [Suspect]
     Active Substance: FECAL MICROBIOTA
     Indication: CLOSTRIDIUM DIFFICILE INFECTION
     Dates: start: 20200318

REACTIONS (7)
  - Recalled product administered [None]
  - Diarrhoea [None]
  - Proctitis [None]
  - Muscle spasms [None]
  - Malaise [None]
  - Pain [None]
  - Colitis [None]

NARRATIVE: CASE EVENT DATE: 20200318
